FAERS Safety Report 9981822 (Version 1)
Quarter: 2014Q1

REPORT INFORMATION
  Report Type: Spontaneous
  Country: US (occurrence: None)
  Receive Date: 20140127
  Receipt Date: 20140127
  Transmission Date: 20141002
  Serious: Yes (Other)
  Sender: FDA-Public Use
  Company Number: 1197491

PATIENT
  Age: 60 Year
  Sex: Female
  Weight: 87.09 kg

DRUGS (3)
  1. RITUXAN [Suspect]
     Indication: RHEUMATOID ARTHRITIS
     Dosage: 1 IN 2 WK
     Route: 042
     Dates: start: 20130228
  2. METHOTREXATE [Concomitant]
  3. TRAMADOL [Concomitant]

REACTIONS (4)
  - Flushing [None]
  - Blood pressure increased [None]
  - Restlessness [None]
  - Malaise [None]
